FAERS Safety Report 11438453 (Version 1)
Quarter: 2015Q3

REPORT INFORMATION
  Report Type: Spontaneous
  Country: US (occurrence: US)
  Receive Date: 20150901
  Receipt Date: 20150901
  Transmission Date: 20151125
  Serious: No
  Sender: FDA-Public Use
  Company Number: US-ROCHE-1154746

PATIENT
  Sex: Male

DRUGS (2)
  1. RIBAVIRIN. [Suspect]
     Active Substance: RIBAVIRIN
     Indication: CHRONIC HEPATITIS C
     Dosage: 1000MG/DAY DIVIDED DOSES
     Route: 048
     Dates: start: 20121006
  2. PEGASYS [Suspect]
     Active Substance: PEGINTERFERON ALFA-2A
     Indication: CHRONIC HEPATITIS C
     Route: 058
     Dates: start: 20121006

REACTIONS (7)
  - Gastrooesophageal reflux disease [Unknown]
  - Nausea [Unknown]
  - Cough [Unknown]
  - Inguinal hernia [Unknown]
  - Bronchitis [Unknown]
  - Abdominal pain [Unknown]
  - Body temperature increased [Unknown]
